FAERS Safety Report 10045525 (Version 1)
Quarter: 2014Q1

REPORT INFORMATION
  Report Type: Spontaneous
  Country: SA (occurrence: SA)
  Receive Date: 20140328
  Receipt Date: 20140328
  Transmission Date: 20141002
  Serious: Yes (Other)
  Sender: FDA-Public Use
  Company Number: SA-009507513-1403SAU010242

PATIENT
  Age: 63 Year
  Sex: Female
  Weight: 96 kg

DRUGS (8)
  1. RIBAVIRIN [Suspect]
     Indication: RESPIRATORY TRACT INFECTION VIRAL
     Dosage: 2000 MG VIA NASOGASTRIC TUBE
  2. RIBAVIRIN [Suspect]
     Dosage: 600 MG, PO EVERY 8 H
     Route: 048
  3. INTERFERON ALFA-2B [Suspect]
     Indication: RESPIRATORY TRACT INFECTION VIRAL
     Dosage: ONE DOSE, 144 UG
     Route: 058
  4. PREDNISONE [Suspect]
     Indication: ACUTE RESPIRATORY DISTRESS SYNDROME
     Dosage: 40 MG, PO DAILY
     Route: 048
  5. PREDNISONE [Suspect]
     Dosage: 10 MG, PO DAILY
  6. OSELTAMIVIR [Concomitant]
     Dosage: 75 MG, QD
  7. LEVOFLOXACIN [Concomitant]
     Dosage: 750 MG, QOD
     Route: 042
  8. IMIPENEM [Concomitant]
     Dosage: 500 MG, Q6H
     Route: 042

REACTIONS (1)
  - Pancreatitis [Unknown]
